FAERS Safety Report 8531102-6 (Version None)
Quarter: 2012Q3

REPORT INFORMATION
  Report Type: 
  Country: None (occurrence: None)
  Receive Date: 20120710
  Receipt Date: 20120625
  Transmission Date: 20120928
  Serious: Yes (Hospitalization)
  Sender: FDA-Public Use
  Company Number: TPA2012A04136

PATIENT
  Age: 56 Year
  Sex: Male
  Weight: 73.0291 kg

DRUGS (5)
  1. VITAMIN D [Concomitant]
  2. DEXILANT [Suspect]
     Indication: GASTROOESOPHAGEAL REFLUX DISEASE
     Dosage: 60 MG, 1 IN 1 D, PER ORAL
     Route: 048
     Dates: start: 20120401, end: 20120501
  3. TRAZODONE HCL [Concomitant]
  4. SYNTHROID [Concomitant]
  5. AVODART [Concomitant]

REACTIONS (3)
  - DRUG INEFFECTIVE [None]
  - OESOPHAGEAL PAIN [None]
  - OVERDOSE [None]
